FAERS Safety Report 8573108-7 (Version None)
Quarter: 2012Q3

REPORT INFORMATION
  Report Type: 
  Country: None (occurrence: None)
  Receive Date: 20120806
  Receipt Date: 20120726
  Transmission Date: 20120928
  Serious: Yes (Hospitalization, Other)
  Sender: FDA-Public Use
  Company Number: US-ACTELION-A-NJ2012-68401

PATIENT
  Age: 58 Year
  Sex: Male

DRUGS (1)
  1. EPOPROSTENOL SODIUM [Suspect]
     Indication: PULMONARY ARTERIAL HYPERTENSION
     Dosage: 11.89 NG/KG, PER MIN
     Route: 041
     Dates: start: 20120216

REACTIONS (4)
  - NO THERAPEUTIC RESPONSE [None]
  - RENAL DISORDER [None]
  - PULMONARY VENO-OCCLUSIVE DISEASE [None]
  - DYSPNOEA [None]
